FAERS Safety Report 24467458 (Version 1)
Quarter: 2024Q4

REPORT INFORMATION
  Report Type: Report from Study
  Country: US (occurrence: US)
  Receive Date: 20241018
  Receipt Date: 20241018
  Transmission Date: 20250114
  Serious: No
  Sender: ROCHE
  Company Number: US-ROCHE-3573114

PATIENT
  Age: 60 Year
  Sex: Female
  Weight: 81.65 kg

DRUGS (13)
  1. XOLAIR [Suspect]
     Active Substance: OMALIZUMAB
     Indication: Asthma
     Route: 058
  2. TAMIFLU [Suspect]
     Active Substance: OSELTAMIVIR PHOSPHATE
     Indication: Product used for unknown indication
     Route: 065
  3. PREDNISOLONE [Concomitant]
     Active Substance: PREDNISOLONE
  4. MORPHINE [Concomitant]
     Active Substance: MORPHINE
  5. ATORVASTATIN [Concomitant]
     Active Substance: ATORVASTATIN
  6. LEVALBUTEROL [Concomitant]
     Active Substance: LEVALBUTEROL
  7. OXYCODONE [Concomitant]
     Active Substance: OXYCODONE
  8. PREGABALIN [Concomitant]
     Active Substance: PREGABALIN
  9. SINGULMON [Concomitant]
  10. TOPAMAX [Concomitant]
     Active Substance: TOPIRAMATE
  11. TOPROL XL [Concomitant]
     Active Substance: METOPROLOL SUCCINATE
  12. TRELEGY ELLIPTA [Concomitant]
     Active Substance: FLUTICASONE FUROATE\UMECLIDINIUM BROMIDE\VILANTEROL TRIFENATATE
  13. TRULICITY [Concomitant]
     Active Substance: DULAGLUTIDE

REACTIONS (2)
  - Off label use [Unknown]
  - Drug hypersensitivity [Unknown]
